FAERS Safety Report 6154898-X (Version None)
Quarter: 2009Q2

REPORT INFORMATION
  Report Type: 
  Country: None (occurrence: None)
  Receive Date: 20090414
  Receipt Date: 20090406
  Transmission Date: 20091009
  Serious: Yes (Death, Life-Threatening, Hospitalization, Disabling)
  Sender: FDA-Public Use
  Company Number: US-PFIZER INC-2008075162

PATIENT
  Sex: Male
  Weight: 70.295 kg

DRUGS (1)
  1. SUNITINIB MALATE [Suspect]
     Indication: METASTASIS
     Dosage: 37.5 MG, 1X/DAY
     Route: 048
     Dates: start: 20080601, end: 20080814

REACTIONS (1)
  - SUBARACHNOID HAEMORRHAGE [None]
